FAERS Safety Report 18323510 (Version 2)
Quarter: 2021Q2

REPORT INFORMATION
  Report Type: Spontaneous
  Country: US (occurrence: US)
  Receive Date: 20200928
  Receipt Date: 20210608
  Transmission Date: 20210717
  Serious: No
  Sender: FDA-Public Use
  Company Number: US-INDIVIOR US-INDV-125895-2020

PATIENT
  Age: 27 Year
  Sex: Male
  Weight: 77.1 kg

DRUGS (11)
  1. L?METHYLFOLATE [Concomitant]
     Active Substance: LEVOMEFOLIC ACID
     Indication: METHYLENETETRAHYDROFOLATE REDUCTASE DEFICIENCY
     Dosage: 5 MILLIGRAM, QD
     Route: 048
  2. SUBLOCADE [Suspect]
     Active Substance: BUPRENORPHINE
     Dosage: 300 MILLIGRAM, QMO
     Route: 058
     Dates: start: 20200810
  3. XANAX [Concomitant]
     Active Substance: ALPRAZOLAM
     Indication: DRUG DEPENDENCE
  4. SUBLOCADE [Suspect]
     Active Substance: BUPRENORPHINE
     Indication: DRUG DEPENDENCE
     Dosage: 300 MILLIGRAM, QMO
     Route: 058
     Dates: start: 20190722
  5. LINZESS [Concomitant]
     Active Substance: LINACLOTIDE
     Indication: IRRITABLE BOWEL SYNDROME
     Dosage: 290 MICROGRAM, QD
     Route: 048
  6. SAPHRIS [Concomitant]
     Active Substance: ASENAPINE MALEATE
     Indication: BIPOLAR DISORDER
     Dosage: 2.5 MILLIGRAM, BID
     Route: 060
  7. XANAX [Concomitant]
     Active Substance: ALPRAZOLAM
     Indication: POST-TRAUMATIC STRESS DISORDER
     Dosage: 2 MILLIGRAM, TID
     Route: 048
  8. SUBLOCADE [Suspect]
     Active Substance: BUPRENORPHINE
     Dosage: 300 MILLIGRAM , QMO (TWELTH DOSE)
     Route: 065
     Dates: start: 20210525
  9. VITAMIN D3 [Concomitant]
     Active Substance: CHOLECALCIFEROL
     Indication: HYPOVITAMINOSIS
     Dosage: 2000 INTERNATIONAL UNIT, QD
     Route: 048
  10. BELSOMRA [Concomitant]
     Active Substance: SUVOREXANT
     Indication: INSOMNIA
     Dosage: 20 MILLIGRAM, QHS
     Route: 048
  11. SUBLOCADE [Suspect]
     Active Substance: BUPRENORPHINE
     Dosage: 150 MILLIGRAM, ONE TIME DOSE
     Route: 058
     Dates: start: 20200713, end: 20200810

REACTIONS (8)
  - Injection site extravasation [Recovered/Resolved]
  - Injection site erosion [Not Recovered/Not Resolved]
  - Injection site pain [Not Recovered/Not Resolved]
  - Injection site bruising [Not Recovered/Not Resolved]
  - Expulsion of medication [Recovered/Resolved]
  - Injection site induration [Not Recovered/Not Resolved]
  - Drug withdrawal syndrome [Unknown]
  - Product use issue [Recovered/Resolved]

NARRATIVE: CASE EVENT DATE: 2020
